FAERS Safety Report 10855250 (Version 1)
Quarter: 2015Q1

REPORT INFORMATION
  Report Type: Spontaneous
  Country: US (occurrence: None)
  Receive Date: 20150218
  Receipt Date: 20150218
  Transmission Date: 20150721
  Serious: Yes (Hospitalization)
  Sender: FDA-Public Use
  Company Number: None

PATIENT
  Age: 21 Year
  Sex: Male
  Weight: 64.86 kg

DRUGS (1)
  1. ERYTHROMYCIN. [Suspect]
     Active Substance: ERYTHROMYCIN
     Route: 047
     Dates: start: 20150208, end: 20150213

REACTIONS (3)
  - Tonsillar hypertrophy [None]
  - Lymphadenopathy [None]
  - Fatigue [None]

NARRATIVE: CASE EVENT DATE: 20150208
